FAERS Safety Report 6133071-5 (Version None)
Quarter: 2009Q1

REPORT INFORMATION
  Report Type: 
  Country: None (occurrence: None)
  Receive Date: 20090326
  Receipt Date: 20090318
  Transmission Date: 20090719
  Serious: Yes (Hospitalization)
  Sender: FDA-Public Use
  Company Number: US-BIOGENIDEC-2009BI007755

PATIENT
  Age: 44 Year
  Sex: Male

DRUGS (2)
  1. AVONEX [Suspect]
     Indication: MULTIPLE SCLEROSIS
     Route: 030
     Dates: start: 20030201, end: 20030801
  2. AVONEX [Suspect]
     Route: 030
     Dates: start: 20030901

REACTIONS (3)
  - DEPRESSION [None]
  - OBSESSIVE-COMPULSIVE DISORDER [None]
  - SUICIDAL IDEATION [None]
